FAERS Safety Report 5029498-5 (Version None)
Quarter: 2006Q2

REPORT INFORMATION
  Report Type: 
  Country: None (occurrence: None)
  Receive Date: 20060620
  Receipt Date: 20050516
  Transmission Date: 20061013
  Serious: Yes (Other)
  Sender: FDA-Public Use
  Company Number: 2005048991

PATIENT
  Age: 64 Year
  Sex: Female

DRUGS (1)
  1. ZYBAN [Suspect]
     Route: 048

REACTIONS (1)
  - CONVULSION [None]
